FAERS Safety Report 7990388-7 (Version None)
Quarter: 2011Q4

REPORT INFORMATION
  Report Type: 
  Country: None (occurrence: None)
  Receive Date: 20111219
  Receipt Date: 20110801
  Transmission Date: 20120403
  Serious: No
  Sender: FDA-Public Use
  Company Number: US-ASTRAZENECA-2011SE39481

PATIENT
  Age: 67 Year
  Sex: Female

DRUGS (3)
  1. PLAVIX [Suspect]
  2. CRESTOR [Suspect]
     Route: 048
  3. ASPIRIN [Suspect]

REACTIONS (1)
  - HAEMORRHAGE [None]
